FAERS Safety Report 4394071-9 (Version None)
Quarter: 2004Q3

REPORT INFORMATION
  Report Type: 
  Country: None (occurrence: None)
  Receive Date: 20040709
  Receipt Date: 20040628
  Transmission Date: 20050211
  Serious: Yes (Hospitalization)
  Sender: FDA-Public Use
  Company Number: US-MERCK-0406USA02636

PATIENT
  Age: 87 Year
  Sex: Female

DRUGS (11)
  1. FOSAMAX [Suspect]
     Indication: OSTEOPOROSIS
     Route: 048
  2. ASCORBIC ACID [Concomitant]
     Route: 065
  3. CALCIUM (UNSPECIFIED) [Concomitant]
     Route: 065
  4. CARDIZEM [Concomitant]
     Route: 065
  5. COLACE [Concomitant]
     Route: 065
  6. LASIX [Concomitant]
     Route: 065
  7. IRON (UNSPECIFIED) [Concomitant]
     Route: 065
  8. PROTONIX [Concomitant]
     Route: 065
  9. POTASSIUM CHLORIDE [Concomitant]
     Route: 065
  10. VITAMINS (UNSPECIFIED) [Concomitant]
     Route: 065
  11. COUMADIN [Concomitant]
     Route: 065

REACTIONS (1)
  - GASTRIC HAEMORRHAGE [None]
